FAERS Safety Report 20311513 (Version 1)
Quarter: 2022Q1

REPORT INFORMATION
  Report Type: Spontaneous
  Country: KR (occurrence: KR)
  Receive Date: 20220108
  Receipt Date: 20220108
  Transmission Date: 20220423
  Serious: Yes (Death, Other)
  Sender: FDA-Public Use
  Company Number: KR-AMGEN-KORSP2022000959

PATIENT

DRUGS (1)
  1. BLINATUMOMAB [Suspect]
     Active Substance: BLINATUMOMAB
     Indication: B precursor type acute leukaemia
     Route: 065

REACTIONS (4)
  - Death [Fatal]
  - B precursor type acute leukaemia [Unknown]
  - Leukaemic infiltration extramedullary [Unknown]
  - Drug ineffective [Unknown]
